FAERS Safety Report 12716808 (Version 1)
Quarter: 2016Q3

REPORT INFORMATION
  Report Type: Spontaneous
  Country: US (occurrence: US)
  Receive Date: 20160906
  Receipt Date: 20160906
  Transmission Date: 20161109
  Serious: Yes (Other)
  Sender: FDA-Public Use
  Company Number: US-BAYER-2016-170353

PATIENT
  Sex: Male
  Weight: 82.54 kg

DRUGS (5)
  1. ALEVE [Suspect]
     Active Substance: NAPROXEN SODIUM
     Indication: INFLAMMATION
     Route: 048
  2. BAYER ASPIRIN REGIMEN REGULAR 325 MG STRENGTH [Suspect]
     Active Substance: ASPIRIN
     Route: 048
  3. TYLENOL [CHLORPHENAM MAL,DEXTROMET HBR,PARACET,PSEUDOEPH HCL] [Concomitant]
     Active Substance: ACETAMINOPHEN\CHLORPHENIRAMINE MALEATE\DEXTROMETHORPHAN HYDROBROMIDE\PSEUDOEPHEDRINE HYDROCHLORIDE
     Dosage: UNK UNK, PRN
  4. PHILLIPS^ FIBER GOOD GUMMIES [Suspect]
     Active Substance: INULIN
     Dosage: 2 DF, BID
     Route: 048
     Dates: end: 20160830
  5. GUAIFENESIN. [Concomitant]
     Active Substance: GUAIFENESIN

REACTIONS (3)
  - Duodenal ulcer haemorrhage [Recovered/Resolved]
  - Faeces discoloured [Not Recovered/Not Resolved]
  - Off label use [None]
